FAERS Safety Report 22294076 (Version 1)
Quarter: 2023Q2

REPORT INFORMATION
  Report Type: Spontaneous
  Country: CN (occurrence: CN)
  Receive Date: 20230508
  Receipt Date: 20230508
  Transmission Date: 20230722
  Serious: Yes (Hospitalization)
  Sender: FDA-Public Use
  Company Number: CN-OTSUKA-2023_011724

PATIENT
  Age: 78 Year
  Sex: Male

DRUGS (1)
  1. TOLVAPTAN [Suspect]
     Active Substance: TOLVAPTAN
     Indication: Cardiac failure
     Dosage: 7.5 MG, QD
     Route: 048
     Dates: start: 20230421, end: 20230425

REACTIONS (2)
  - Hepatic function abnormal [Unknown]
  - Underdose [Unknown]

NARRATIVE: CASE EVENT DATE: 20230421
